FAERS Safety Report 4907046-5 (Version None)
Quarter: 2006Q1

REPORT INFORMATION
  Report Type: 
  Country: None (occurrence: None)
  Receive Date: 20060207
  Receipt Date: 20060126
  Transmission Date: 20060701
  Serious: Yes (Hospitalization, Other)
  Sender: FDA-Public Use
  Company Number: 200610501BWH

PATIENT
  Age: 68 Year
  Sex: Male
  Weight: 99.3377 kg

DRUGS (4)
  1. SORAFENIB [Suspect]
     Indication: METASTATIC RENAL CELL CARCINOMA
     Dosage: 400 MG, BID, ORAL
     Route: 048
     Dates: start: 20051005, end: 20051026
  2. ATENOLO [Concomitant]
  3. PROTONIX [Concomitant]
  4. SYNTHROID [Concomitant]

REACTIONS (6)
  - BLOOD CREATININE INCREASED [None]
  - BLOOD SODIUM DECREASED [None]
  - DIARRHOEA [None]
  - HAEMATOCRIT DECREASED [None]
  - HAEMOGLOBIN DECREASED [None]
  - RECTAL ABSCESS [None]
